FAERS Safety Report 23188354 (Version 3)
Quarter: 2024Q1

REPORT INFORMATION
  Report Type: Spontaneous
  Country: US (occurrence: US)
  Receive Date: 20231115
  Receipt Date: 20240109
  Transmission Date: 20240409
  Serious: No
  Sender: FDA-Public Use
  Company Number: US-PFIZER INC-PV202300186071

PATIENT
  Age: 69 Year
  Sex: Female

DRUGS (3)
  1. IBRANCE [Suspect]
     Active Substance: PALBOCICLIB
     Indication: Breast cancer female
     Dosage: 100 MG
  2. IBRANCE [Suspect]
     Active Substance: PALBOCICLIB
     Indication: Metastases to meninges
     Dosage: TAKE 1 TABLET 100 MG TOTAL ONE TIME A DAY (REGIMEN IS 21 DAYS FOLLOWED BY 7 DAYS OFF)
     Route: 048
  3. IBRANCE [Suspect]
     Active Substance: PALBOCICLIB
     Indication: Metastases to bone

REACTIONS (2)
  - Headache [Unknown]
  - Disturbance in attention [Unknown]
